FAERS Safety Report 5875384-8 (Version None)
Quarter: 2008Q3

REPORT INFORMATION
  Report Type: 
  Country: None (occurrence: None)
  Receive Date: 20080904
  Receipt Date: 20080820
  Transmission Date: 20090109
  Serious: Yes (Other)
  Sender: FDA-Public Use
  Company Number: 1419181-2008-0012

PATIENT
  Sex: Male
  Weight: 85.7298 kg

DRUGS (1)
  1. CHLORHEXIDINE GLUCONATE [Suspect]
     Indication: INFECTION PROPHYLAXIS
     Dosage: 3000MG DAILY TOPICAL
     Route: 061
     Dates: start: 20080805, end: 20080828

REACTIONS (7)
  - ABDOMINAL PAIN [None]
  - BACTERAEMIA [None]
  - BURKHOLDERIA CEPACIA INFECTION [None]
  - CALCULUS URETERIC [None]
  - HYDRONEPHROSIS [None]
  - PYREXIA [None]
  - URINARY TRACT INFECTION [None]
